FAERS Safety Report 5855988-9 (Version None)
Quarter: 2008Q3

REPORT INFORMATION
  Report Type: 
  Country: None (occurrence: None)
  Receive Date: 20080825
  Receipt Date: 20080811
  Transmission Date: 20090109
  Serious: Yes (Disabling)
  Sender: FDA-Public Use
  Company Number: PHHY2008GB18054

PATIENT
  Age: 73 Year
  Sex: Male
  Weight: 119 kg

DRUGS (5)
  1. NATEGLINIDE [Suspect]
     Dosage: 60 MG/DAY
     Dates: start: 20080619, end: 20080628
  2. BENDROFLUAZIDE [Concomitant]
     Indication: HYPERTENSION
     Dosage: 2.5 MG/DAY
     Route: 048
     Dates: start: 20010504
  3. DOXAZOSIN MESYLATE [Concomitant]
     Indication: HYPERTENSION
     Dosage: 8 MG/DAY
     Route: 048
     Dates: start: 20061002
  4. LISINOPRIL [Concomitant]
     Indication: HYPERTENSION
     Dosage: 30 MG/DAY
     Route: 048
     Dates: start: 20070913
  5. PROSCAR [Concomitant]
     Indication: BENIGN PROSTATIC HYPERPLASIA
     Dosage: 5 MG/DAY
     Route: 048
     Dates: start: 19960510

REACTIONS (3)
  - DIARRHOEA [None]
  - HYPERHIDROSIS [None]
  - LETHARGY [None]
